FAERS Safety Report 5966223-5 (Version None)
Quarter: 2008Q4

REPORT INFORMATION
  Report Type: 
  Country: None (occurrence: None)
  Receive Date: 20081125
  Receipt Date: 20081120
  Transmission Date: 20090506
  Serious: Yes (Other)
  Sender: FDA-Public Use
  Company Number: US-JNJFOC-20081105351

PATIENT
  Age: 59 Year
  Sex: Female
  Weight: 90.72 kg

DRUGS (7)
  1. TYLENOL (CAPLET) [Suspect]
     Indication: TENDONITIS
     Route: 048
  2. TYLENOL (CAPLET) [Suspect]
     Indication: ARTHRITIS
     Route: 048
  3. ALBUTEROL [Concomitant]
     Indication: RESPIRATORY TRACT CONGESTION
     Dosage: 3-4 DOSES DAILY
  4. GLUCOPHAGE [Concomitant]
     Indication: TYPE 2 DIABETES MELLITUS
  5. SIMVASTATIN [Concomitant]
     Indication: BLOOD CHOLESTEROL ABNORMAL
  6. DIURETIC [Concomitant]
  7. MUCUS RELIEF [Concomitant]
     Indication: SINUS CONGESTION

REACTIONS (1)
  - VAGINAL HAEMORRHAGE [None]
